FAERS Safety Report 10450196 (Version 1)
Quarter: 2014Q3

REPORT INFORMATION
  Report Type: Spontaneous
  Country: AR (occurrence: AR)
  Receive Date: 20140912
  Receipt Date: 20140912
  Transmission Date: 20150326
  Serious: Yes (Other)
  Sender: FDA-Public Use
  Company Number: AR-SA-2014SA121304

PATIENT
  Age: 51 Year
  Sex: Female

DRUGS (1)
  1. MIPOMERSEN SODIUM [Suspect]
     Active Substance: MIPOMERSEN SODIUM
     Indication: TYPE IIA HYPERLIPIDAEMIA
     Route: 058
     Dates: start: 20131010, end: 2014

REACTIONS (4)
  - Pneumonia [Recovering/Resolving]
  - Respiratory disorder [Recovering/Resolving]
  - Hepatic enzyme increased [Recovering/Resolving]
  - Pyrexia [Recovering/Resolving]

NARRATIVE: CASE EVENT DATE: 201408
